FAERS Safety Report 12147959 (Version 1)
Quarter: 2016Q1

REPORT INFORMATION
  Report Type: Spontaneous
  Country: DE (occurrence: DE)
  Receive Date: 20160304
  Receipt Date: 20160304
  Transmission Date: 20160526
  Serious: Yes (Death)
  Sender: FDA-Public Use
  Company Number: DE-KADMON PHARMACEUTICALS, LLC-KAD201306-000765

PATIENT
  Age: 10 Year
  Sex: Female

DRUGS (10)
  1. RIBAVIRIN. [Suspect]
     Active Substance: RIBAVIRIN
     Route: 042
  2. TRIMETHOPRIM-SULFAMETHOXAZOLE [Concomitant]
     Active Substance: SULFAMETHOXAZOLE\TRIMETHOPRIM
  3. RIBAVIRIN. [Suspect]
     Active Substance: RIBAVIRIN
     Route: 048
  4. IMMUNOGLOBULINS [Concomitant]
     Active Substance: HUMAN IMMUNOGLOBULIN G
     Indication: METAPNEUMOVIRUS INFECTION
     Route: 042
  5. RIBAVIRIN. [Suspect]
     Active Substance: RIBAVIRIN
     Indication: METAPNEUMOVIRUS INFECTION
     Route: 048
  6. RIBAVIRIN. [Suspect]
     Active Substance: RIBAVIRIN
     Route: 042
  7. RIBAVIRIN. [Suspect]
     Active Substance: RIBAVIRIN
     Route: 042
  8. METHYLPREDNISOLONE. [Concomitant]
     Active Substance: METHYLPREDNISOLONE
  9. ERYTHROMYCIN. [Concomitant]
     Active Substance: ERYTHROMYCIN
  10. METHYLPREDNISOLONE. [Concomitant]
     Active Substance: METHYLPREDNISOLONE
     Indication: METAPNEUMOVIRUS INFECTION

REACTIONS (2)
  - Respiratory failure [Fatal]
  - Product use issue [Unknown]
